FAERS Safety Report 9893715 (Version 1)
Quarter: 2014Q1

REPORT INFORMATION
  Report Type: Other
  Country: GB (occurrence: GB)
  Receive Date: 20140213
  Receipt Date: 20140213
  Transmission Date: 20141002
  Serious: Yes (Death, Life-Threatening, Disabling)
  Sender: FDA-Public Use
  Company Number: GB-TARO PHARMACEUTICALS U.S.A., INC-2014SUN00237

PATIENT
  Age: 84 Year
  Sex: Male

DRUGS (5)
  1. WARFARIN [Suspect]
     Indication: ATRIAL FIBRILLATION
     Dosage: 3MG FOR FIVE DAYS AND 6 MG FOR TWO DAYS (3MG,3MG,3MG,3MG,6MG,3MG,6MG) OF A WEEK
     Route: 048
     Dates: start: 20121022, end: 20140108
  2. WARFARIN [Suspect]
     Indication: ATRIAL FLUTTER
  3. ALLOPURINOL [Concomitant]
     Dosage: 300 MG, OD
     Route: 048
     Dates: start: 20010620
  4. AMLODIPINE [Concomitant]
     Indication: HYPERTENSION
     Dosage: 5 MG, OD
     Route: 048
     Dates: start: 20020109
  5. ATENOLOL [Concomitant]
     Dosage: 50 MG, OD
     Route: 048
     Dates: start: 20100202

REACTIONS (6)
  - Cerebrovascular accident [Fatal]
  - Pneumonia aspiration [Not Recovered/Not Resolved]
  - Tachycardia [Not Recovered/Not Resolved]
  - Ventricular fibrillation [Not Recovered/Not Resolved]
  - Cerebral haematoma [Not Recovered/Not Resolved]
  - Intraventricular haemorrhage [Not Recovered/Not Resolved]
